FAERS Safety Report 9240868 (Version 1)
Quarter: 2013Q2

REPORT INFORMATION
  Report Type: Spontaneous
  Country: BR (occurrence: BR)
  Receive Date: 20130418
  Receipt Date: 20130418
  Transmission Date: 20140414
  Serious: Yes (Hospitalization)
  Sender: FDA-Public Use
  Company Number: BR-009507513-1304BRA008364

PATIENT
  Age: 33 Year
  Sex: Female
  Weight: 72 kg

DRUGS (1)
  1. NUVARING [Suspect]
     Indication: CONTRACEPTION
     Dosage: UNK
     Route: 067
     Dates: start: 201212

REACTIONS (6)
  - Appendicectomy [Recovered/Resolved]
  - Appendicitis [Recovered/Resolved]
  - Post procedural infection [Unknown]
  - Device expulsion [Unknown]
  - Device expulsion [Unknown]
  - Vulvovaginal discomfort [Not Recovered/Not Resolved]
